FAERS Safety Report 6834600-6 (Version None)
Quarter: 2010Q3

REPORT INFORMATION
  Report Type: 
  Country: None (occurrence: None)
  Receive Date: 20100712
  Receipt Date: 20070606
  Transmission Date: 20110219
  Serious: No
  Sender: FDA-Public Use
  Company Number: US-PFIZER INC-2007031221

PATIENT
  Sex: Female
  Weight: 58.97 kg

DRUGS (6)
  1. CHANTIX [Suspect]
     Indication: SMOKING CESSATION THERAPY
     Dates: start: 20070409
  2. PHENAZOPYRIDINE HCL TAB [Concomitant]
  3. OMNICEF [Concomitant]
     Indication: NASOPHARYNGITIS
  4. SULFAMETHOXAZOLE/TRIMETHOPRIM ^DAK^ [Concomitant]
  5. PROMETHAZINE [Concomitant]
     Indication: COUGH
     Dates: end: 20070401
  6. VICODIN ES [Concomitant]
     Indication: BACK PAIN

REACTIONS (2)
  - STRESS [None]
  - TOBACCO USER [None]
